FAERS Safety Report 12290150 (Version 3)
Quarter: 2016Q2

REPORT INFORMATION
  Report Type: Spontaneous
  Country: AU (occurrence: AU)
  Receive Date: 20160421
  Receipt Date: 20160513
  Transmission Date: 20160815
  Serious: Yes (Hospitalization)
  Sender: FDA-Public Use
  Company Number: AU-SUNOVION-2016DSP000183

PATIENT
  Age: 45 Year
  Sex: Female
  Weight: 100 kg

DRUGS (14)
  1. ATORVASTATIN [Concomitant]
     Active Substance: ATORVASTATIN
     Dosage: 20 MG, QD
  2. MODURETIC 5-50 [Concomitant]
     Active Substance: AMILORIDE HYDROCHLORIDE\HYDROCHLOROTHIAZIDE
     Dosage: 50/5
  3. THYROXINE [Concomitant]
     Active Substance: LEVOTHYROXINE
     Dosage: 150 ?G, QD
  4. LATUDA [Suspect]
     Active Substance: LURASIDONE HYDROCHLORIDE
     Dosage: 80 MG, QD
     Route: 048
     Dates: start: 20160324, end: 20160407
  5. SOMAC [Concomitant]
     Active Substance: PANTOPRAZOLE SODIUM
     Dosage: 40 MG, QD
  6. EPILIM [Concomitant]
     Active Substance: VALPROATE SODIUM
     Dosage: 1 G, BID
  7. SALBUTAMOL [Concomitant]
     Active Substance: ALBUTEROL
     Dosage: 100 MCG 1 PUFF
  8. LATUDA [Suspect]
     Active Substance: LURASIDONE HYDROCHLORIDE
     Indication: SCHIZOAFFECTIVE DISORDER
     Dosage: 40 MG, QD
     Route: 048
     Dates: start: 20160317, end: 20160324
  9. FRUSEMIDE [Concomitant]
     Active Substance: FUROSEMIDE
     Dosage: 20 MG, QD
  10. RISPERIDONE. [Concomitant]
     Active Substance: RISPERIDONE
     Dosage: 4 MG, QD
  11. FLUOXETINE [Concomitant]
     Active Substance: FLUOXETINE HYDROCHLORIDE
     Dosage: 20 MG, QD
  12. QUETIAPINE. [Concomitant]
     Active Substance: QUETIAPINE
     Dosage: 200 MG, QD
  13. DITROPAN [Concomitant]
     Active Substance: OXYBUTYNIN CHLORIDE
     Dosage: 5 MG, QD
  14. METFORMIN [Concomitant]
     Active Substance: METFORMIN HYDROCHLORIDE
     Dosage: 1 G, BID

REACTIONS (1)
  - Liver disorder [Recovering/Resolving]

NARRATIVE: CASE EVENT DATE: 20160402
